FAERS Safety Report 5006815-3 (Version None)
Quarter: 2006Q2

REPORT INFORMATION
  Report Type: 
  Country: None (occurrence: None)
  Receive Date: 20060519
  Receipt Date: 20060508
  Transmission Date: 20061013
  Serious: Yes (Other)
  Sender: FDA-Public Use
  Company Number: US-BRISTOL-MYERS SQUIBB COMPANY-13371661

PATIENT

DRUGS (1)
  1. ABILIFY [Suspect]

REACTIONS (2)
  - BLOOD PROLACTIN INCREASED [None]
  - PITUITARY TUMOUR [None]
